FAERS Safety Report 9360063 (Version 1)
Quarter: 2013Q2

REPORT INFORMATION
  Report Type: Spontaneous
  Country: US (occurrence: US)
  Receive Date: 20130621
  Receipt Date: 20130621
  Transmission Date: 20140414
  Serious: Yes (Other)
  Sender: FDA-Public Use
  Company Number: US-ALEXION-A201301397

PATIENT
  Age: 30 Year
  Sex: Male
  Weight: 83.91 kg

DRUGS (7)
  1. SOLIRIS 300MG [Suspect]
     Indication: HAEMOLYTIC URAEMIC SYNDROME
     Dosage: 900 MG, QW X 4
     Route: 042
     Dates: start: 20130408
  2. SOLIRIS 300MG [Suspect]
     Dosage: 1200 MG, Q2W
     Route: 042
     Dates: start: 20130517
  3. PRILOSEC [Concomitant]
     Indication: ABDOMINAL DISCOMFORT
     Dosage: 20 MG, QD
     Route: 048
  4. COLACE [Concomitant]
     Dosage: 100 MG, BID
     Route: 048
  5. ALDACTONE [Concomitant]
     Indication: OEDEMA
     Dosage: 25 MG, QD
     Route: 048
  6. OXYCODONE [Concomitant]
     Indication: PAIN
     Dosage: 5 MG, QID PRN
     Route: 048
  7. MORPHINE [Concomitant]
     Indication: PAIN
     Dosage: 100 MG, QID PRN
     Route: 048

REACTIONS (1)
  - Hypertension [Recovered/Resolved]
